FAERS Safety Report 15049629 (Version 1)
Quarter: 2018Q2

REPORT INFORMATION
  Report Type: Spontaneous
  Country: GB (occurrence: GB)
  Receive Date: 20180622
  Receipt Date: 20180622
  Transmission Date: 20180711
  Serious: Yes (Hospitalization)
  Sender: FDA-Public Use
  Company Number: GB-MYLANLABS-2018M1041573

PATIENT
  Sex: Male

DRUGS (1)
  1. CLOZARIL [Suspect]
     Active Substance: CLOZAPINE
     Indication: SCHIZOPHRENIA
     Dosage: UNK
     Route: 048
     Dates: start: 20180514, end: 20180529

REACTIONS (3)
  - Atypical pneumonia [Recovering/Resolving]
  - Eosinophilia [Recovering/Resolving]
  - Differential white blood cell count abnormal [Unknown]

NARRATIVE: CASE EVENT DATE: 201805
